FAERS Safety Report 7532386-3 (Version None)
Quarter: 2011Q2

REPORT INFORMATION
  Report Type: 
  Country: None (occurrence: None)
  Receive Date: 20110608
  Receipt Date: 20110603
  Transmission Date: 20111010
  Serious: Yes (Hospitalization, Other)
  Sender: FDA-Public Use
  Company Number: US-PFIZER INC-2010006415

PATIENT
  Sex: Female

DRUGS (3)
  1. CHANTIX [Suspect]
     Indication: SMOKING CESSATION THERAPY
     Dosage: UNK
     Dates: start: 20070101
  2. ZOLOFT [Concomitant]
     Indication: DEPRESSION
     Dosage: 50 MG, UNK
     Dates: start: 20000101
  3. XANAX [Concomitant]
     Indication: ANXIETY
     Dosage: UNK
     Dates: start: 19900101, end: 20100510

REACTIONS (3)
  - ABNORMAL BEHAVIOUR [None]
  - DEPRESSION [None]
  - SUICIDE ATTEMPT [None]
